FAERS Safety Report 21306652 (Version 1)
Quarter: 2022Q3

REPORT INFORMATION
  Report Type: Spontaneous
  Country: SE (occurrence: SE)
  Receive Date: 20220908
  Receipt Date: 20220908
  Transmission Date: 20221026
  Serious: Yes (Other)
  Sender: FDA-Public Use
  Company Number: None

PATIENT
  Age: 63 Year
  Sex: Male

DRUGS (2)
  1. AMLODIPINE [Suspect]
     Active Substance: AMLODIPINE BESYLATE
     Indication: Blood pressure increased
     Dosage: 1 TABLET 1 TIME/DAY
     Dates: start: 20210601
  2. CANDESARTAN [Concomitant]
     Active Substance: CANDESARTAN
     Dosage: 1 TABLET 1G/DAY
     Dates: start: 20210601

REACTIONS (1)
  - Gingival oedema [Not Recovered/Not Resolved]

NARRATIVE: CASE EVENT DATE: 20210701
